FAERS Safety Report 19060374 (Version 1)
Quarter: 2021Q1

REPORT INFORMATION
  Report Type: Spontaneous
  Country: CA (occurrence: CA)
  Receive Date: 20210326
  Receipt Date: 20210326
  Transmission Date: 20210420
  Serious: Yes (Other)
  Sender: FDA-Public Use
  Company Number: CA-CELLTRION INC.-2020CA033730

PATIENT

DRUGS (3)
  1. INFLECTRA [Suspect]
     Active Substance: INFLIXIMAB-DYYB
     Dosage: 600 MG/KG AT 0, 2, 6 AND THEN EVERY 8 WEEKS
     Route: 042
     Dates: start: 20210209
  2. INFLECTRA [Suspect]
     Active Substance: INFLIXIMAB-DYYB
     Dosage: 600 MG/KG AT 0, 2, 6 AND THEN EVERY 8 WEEKS
     Route: 042
     Dates: start: 20210309
  3. INFLECTRA [Suspect]
     Active Substance: INFLIXIMAB-DYYB
     Indication: CROHN^S DISEASE
     Dosage: 600 MG/KG AT 0, 2, 6 AND THEN EVERY 8 WEEKS/ INDUCTION WEEK 0
     Route: 042
     Dates: start: 20210127

REACTIONS (8)
  - Injection site cellulitis [Unknown]
  - Blood pressure systolic increased [Unknown]
  - Intentional product use issue [Unknown]
  - Pruritus [Unknown]
  - Off label use [Unknown]
  - Weight increased [Unknown]
  - Crohn^s disease [Not Recovered/Not Resolved]
  - Incorrect product administration duration [Unknown]

NARRATIVE: CASE EVENT DATE: 20210127
